FAERS Safety Report 15092869 (Version 1)
Quarter: 2018Q2

REPORT INFORMATION
  Report Type: Spontaneous
  Country: FR (occurrence: FR)
  Receive Date: 20180629
  Receipt Date: 20180629
  Transmission Date: 20180711
  Serious: Yes (Other)
  Sender: FDA-Public Use
  Company Number: FR-009507513-1806FRA011714

PATIENT
  Age: 68 Year
  Sex: Male
  Weight: 50 kg

DRUGS (2)
  1. PROPYLEX [Suspect]
     Active Substance: PROPYLENE GLYCOL
     Indication: HYPERTHYROIDISM
     Dosage: 200 MG, QD
     Route: 048
     Dates: start: 201803, end: 201805
  2. KEYTRUDA [Suspect]
     Active Substance: PEMBROLIZUMAB
     Indication: TRANSITIONAL CELL CARCINOMA
     Dosage: 200 MG, Q3W
     Route: 041
     Dates: start: 20180122, end: 20180416

REACTIONS (2)
  - Cholestasis [Recovering/Resolving]
  - Hepatocellular injury [Recovering/Resolving]

NARRATIVE: CASE EVENT DATE: 20180524
